FAERS Safety Report 13674696 (Version 1)
Quarter: 2017Q2

REPORT INFORMATION
  Report Type: Spontaneous
  Country: US (occurrence: US)
  Receive Date: 20170621
  Receipt Date: 20170621
  Transmission Date: 20170830
  Serious: No
  Sender: FDA-Public Use
  Company Number: US-PFIZER INC-2017265331

PATIENT
  Sex: Male
  Weight: 130.5 kg

DRUGS (1)
  1. CARBOPLATIN. [Suspect]
     Active Substance: CARBOPLATIN
     Dosage: UNK
     Dates: start: 201110, end: 201111

REACTIONS (2)
  - Radiation oesophagitis [Unknown]
  - Neuropathy peripheral [Unknown]
